FAERS Safety Report 8488331-X (Version None)
Quarter: 2012Q3

REPORT INFORMATION
  Report Type: 
  Country: None (occurrence: None)
  Receive Date: 20120705
  Receipt Date: 20120626
  Transmission Date: 20120928
  Serious: Yes (Hospitalization)
  Sender: FDA-Public Use
  Company Number: US-JNJFOC-20120614670

PATIENT
  Sex: Male
  Weight: 35 kg

DRUGS (9)
  1. CIMZIA [Concomitant]
     Dates: start: 20100720
  2. PROBIOTICS [Concomitant]
  3. ACETAMINOPHEN [Concomitant]
  4. REMICADE [Suspect]
     Indication: INFLAMMATORY BOWEL DISEASE
     Route: 042
     Dates: start: 20040826
  5. HUMIRA [Concomitant]
     Dates: start: 20100420
  6. HUMIRA [Concomitant]
     Dates: end: 20100720
  7. REMICADE [Suspect]
     Route: 042
     Dates: start: 20090701
  8. CIMZIA [Concomitant]
  9. CHOLECALCIFEROL [Concomitant]

REACTIONS (3)
  - DEHYDRATION [None]
  - CLOSTRIDIAL INFECTION [None]
  - HYPONATRAEMIA [None]
